FAERS Safety Report 7741343-3 (Version None)
Quarter: 2011Q3

REPORT INFORMATION
  Report Type: 
  Country: None (occurrence: None)
  Receive Date: 20110909
  Receipt Date: 20110816
  Transmission Date: 20111222
  Serious: No
  Sender: FDA-Public Use
  Company Number: US-BAYER-2011-076461

PATIENT
  Age: 34 Year
  Sex: Male

DRUGS (3)
  1. INTERFERON BETA-1B [Suspect]
     Indication: MULTIPLE SCLEROSIS
  2. GLATIRAMER ACETATE [Concomitant]
  3. MITOXANTRONE [Concomitant]

REACTIONS (2)
  - DEPRESSED MOOD [None]
  - DEPRESSION [None]
